FAERS Safety Report 11697795 (Version 1)
Quarter: 2015Q4

REPORT INFORMATION
  Report Type: Spontaneous
  Country: US (occurrence: US)
  Receive Date: 20151104
  Receipt Date: 20151104
  Transmission Date: 20160304
  Serious: No
  Sender: FDA-Public Use
  Company Number: US-ELI_LILLY_AND_COMPANY-US201012001234

PATIENT
  Sex: Female

DRUGS (3)
  1. ACTONEL [Concomitant]
     Active Substance: RISEDRONATE SODIUM
  2. FORTEO [Suspect]
     Active Substance: TERIPARATIDE
     Indication: OSTEOPOROSIS
     Dosage: 20 UG, DAILY (1/D)
     Dates: start: 20101001, end: 20101013
  3. COUMADIN                                /ITA/ [Concomitant]
     Dates: start: 2003

REACTIONS (6)
  - Myalgia [Unknown]
  - Head discomfort [Unknown]
  - Diarrhoea [Unknown]
  - Adverse event [Unknown]
  - Rectal haemorrhage [Unknown]
  - Muscle spasms [Unknown]
